FAERS Safety Report 10163918 (Version 1)
Quarter: 2014Q2

REPORT INFORMATION
  Report Type: Spontaneous
  Country: AU (occurrence: AU)
  Receive Date: 20140510
  Receipt Date: 20140510
  Transmission Date: 20141212
  Serious: Yes (Death)
  Sender: FDA-Public Use
  Company Number: AU-ABBVIE-14K-008-1235952-00

PATIENT
  Age: 80 Year
  Sex: Male

DRUGS (1)
  1. LUCRIN [Suspect]
     Indication: PRODUCT USED FOR UNKNOWN INDICATION
     Dates: start: 20121116, end: 20140410

REACTIONS (1)
  - Death [Fatal]
